FAERS Safety Report 17979144 (Version 8)
Quarter: 2021Q2

REPORT INFORMATION
  Report Type: Spontaneous
  Country: US (occurrence: US)
  Receive Date: 20200703
  Receipt Date: 20210616
  Transmission Date: 20210717
  Serious: Yes (Other)
  Sender: FDA-Public Use
  Company Number: US-TAKEDA-2020TUS028891

PATIENT
  Sex: Female

DRUGS (5)
  1. ALUNBRIG [Suspect]
     Active Substance: BRIGATINIB
     Indication: LUNG CARCINOMA CELL TYPE UNSPECIFIED STAGE 0
     Dosage: 180 MILLIGRAM, QD
     Route: 065
     Dates: start: 202006
  2. ALUNBRIG [Suspect]
     Active Substance: BRIGATINIB
     Dosage: 30 MILLIGRAM, QD
     Route: 065
  3. ALUNBRIG [Suspect]
     Active Substance: BRIGATINIB
     Dosage: 30 MILLIGRAM, QD
     Route: 065
  4. ALUNBRIG [Suspect]
     Active Substance: BRIGATINIB
     Indication: BRAIN CANCER METASTATIC
     Dosage: 90 MILLIGRAM, QD
     Route: 065
  5. ALUNBRIG [Suspect]
     Active Substance: BRIGATINIB
     Dosage: 120 MILLIGRAM, QD
     Route: 065

REACTIONS (13)
  - Lung carcinoma cell type unspecified stage 0 [Unknown]
  - Amnesia [Not Recovered/Not Resolved]
  - Speech disorder [Unknown]
  - Nausea [Unknown]
  - Cognitive disorder [Not Recovered/Not Resolved]
  - Memory impairment [Unknown]
  - Metastases to central nervous system [Unknown]
  - Back disorder [Unknown]
  - Dyspnoea [Unknown]
  - Illness [Unknown]
  - Malaise [Unknown]
  - Confusional state [Unknown]
  - Off label use [Unknown]
